FAERS Safety Report 14547187 (Version 1)
Quarter: 2018Q1

REPORT INFORMATION
  Report Type: Report from Study
  Country: US (occurrence: US)
  Receive Date: 20180219
  Receipt Date: 20180219
  Transmission Date: 20180509
  Serious: No
  Sender: FDA-Public Use
  Company Number: US-AMGEN-USASL2018021608

PATIENT
  Age: 48 Year
  Sex: Female

DRUGS (1)
  1. ENBREL [Suspect]
     Active Substance: ETANERCEPT
     Indication: PSORIATIC ARTHROPATHY
     Dosage: 50 MG, QWK
     Route: 065
     Dates: start: 20180202

REACTIONS (9)
  - Injection site pain [Recovering/Resolving]
  - Injection site swelling [Recovering/Resolving]
  - Injection site bruising [Recovering/Resolving]
  - Injection site induration [Recovering/Resolving]
  - Injection site erythema [Recovering/Resolving]
  - Drug hypersensitivity [Recovering/Resolving]
  - Injection site rash [Recovering/Resolving]
  - Injection site discolouration [Recovering/Resolving]
  - Injection site warmth [Recovering/Resolving]

NARRATIVE: CASE EVENT DATE: 20180202
